FAERS Safety Report 9419368 (Version 1)
Quarter: 2013Q3

REPORT INFORMATION
  Report Type: Spontaneous
  Country: US (occurrence: US)
  Receive Date: 20130725
  Receipt Date: 20130725
  Transmission Date: 20140515
  Serious: No
  Sender: FDA-Public Use
  Company Number: US-BAYER-2013-089736

PATIENT
  Age: 83 Year
  Sex: Female

DRUGS (1)
  1. ALEVE TABLET [Suspect]
     Indication: ANALGESIC THERAPY
     Dosage: 1 DF, QD
     Route: 048
     Dates: start: 20130717, end: 20130718

REACTIONS (8)
  - Drug ineffective [None]
  - Malaise [Not Recovered/Not Resolved]
  - Feeling abnormal [Not Recovered/Not Resolved]
  - Dry mouth [Not Recovered/Not Resolved]
  - Lip swelling [Not Recovered/Not Resolved]
  - Hot flush [Not Recovered/Not Resolved]
  - Feeling cold [Not Recovered/Not Resolved]
  - Asthenia [Not Recovered/Not Resolved]
